FAERS Safety Report 4505664-X (Version None)
Quarter: 2004Q4

REPORT INFORMATION
  Report Type: 
  Country: None (occurrence: None)
  Receive Date: 20041018
  Receipt Date: 20040715
  Transmission Date: 20050328
  Serious: No
  Sender: FDA-Public Use
  Company Number: 207884

PATIENT
  Age: 40 Year
  Sex: Female

DRUGS (4)
  1. XOLAIR [Suspect]
     Indication: ASTHMA
     Dosage: 375 MG, Q2W, SUBCUTANEOUS
     Route: 058
     Dates: start: 20031001, end: 20040401
  2. XOLAIR [Suspect]
     Indication: ASTHMA
     Dosage: 375 MG, Q2W, SUBCUTANEOUS
     Route: 058
     Dates: start: 20040616
  3. LIPITOR [Concomitant]
  4. ASTHMA MEDICTIONS NOS (ANTIASTHMATIC DRUG NOS) [Concomitant]

REACTIONS (3)
  - ARTHRALGIA [None]
  - EAR PAIN [None]
  - LETHARGY [None]
